FAERS Safety Report 9296757 (Version 3)
Quarter: 2014Q2

REPORT INFORMATION
  Report Type: Spontaneous
  Country: CN (occurrence: CN)
  Receive Date: 20130517
  Receipt Date: 20140514
  Transmission Date: 20141212
  Serious: Yes (Hospitalization)
  Sender: FDA-Public Use
  Company Number: PHHY2013CN049384

PATIENT
  Age: 50 Year
  Sex: Male

DRUGS (1)
  1. EXFORGE [Suspect]
     Indication: HYPERTENSION
     Dosage: 0.5 DF (80MG VALS/ 5MG AMLO), DAILY
     Route: 048
     Dates: start: 20130505, end: 20130515

REACTIONS (9)
  - Cerebral infarction [Recovering/Resolving]
  - Loss of consciousness [Recovering/Resolving]
  - Insomnia [Recovering/Resolving]
  - Restlessness [Recovering/Resolving]
  - Muscular weakness [Recovering/Resolving]
  - Speech disorder [Recovering/Resolving]
  - Drooling [Recovering/Resolving]
  - Dysphoria [Recovering/Resolving]
  - Wrong technique in drug usage process [Unknown]
